FAERS Safety Report 8158843-7 (Version None)
Quarter: 2012Q1

REPORT INFORMATION
  Report Type: 
  Country: None (occurrence: None)
  Receive Date: 20120217
  Receipt Date: 20120206
  Transmission Date: 20120608
  Serious: Yes (Other)
  Sender: FDA-Public Use
  Company Number: 2012MA001713

PATIENT
  Age: 6 Day
  Sex: Female
  Weight: 0.72 kg

DRUGS (2)
  1. IBUPROFEN [Suspect]
     Indication: PATENT DUCTUS ARTERIOSUS
     Dosage: X2
  2. FEVERALL [Suspect]
     Indication: PATENT DUCTUS ARTERIOSUS
     Dosage: 15 MG/KG;Q6H

REACTIONS (4)
  - TREATMENT FAILURE [None]
  - OFF LABEL USE [None]
  - THROMBOCYTOPENIA [None]
  - STAPHYLOCOCCAL SEPSIS [None]
